FAERS Safety Report 7913938-5 (Version None)
Quarter: 2011Q4

REPORT INFORMATION
  Report Type: 
  Country: None (occurrence: None)
  Receive Date: 20111115
  Receipt Date: 20111111
  Transmission Date: 20120403
  Serious: Yes (Death, Hospitalization)
  Sender: FDA-Public Use
  Company Number: IT-PFIZER INC-2006020688

PATIENT
  Age: 56 Year
  Sex: Male

DRUGS (5)
  1. RAMIPRIL [Concomitant]
     Route: 048
  2. LASIX [Concomitant]
     Route: 048
  3. ALLOPURINOL [Concomitant]
     Route: 048
  4. NORVASC [Concomitant]
     Route: 048
  5. SUNITINIB MALATE [Suspect]
     Indication: METASTATIC RENAL CELL CARCINOMA
     Dosage: 50 MG, 1X/DAY
     Route: 048
     Dates: start: 20051210, end: 20060208

REACTIONS (7)
  - PYREXIA [None]
  - PULMONARY CONGESTION [None]
  - HYPERTENSION [None]
  - PULMONARY OEDEMA [None]
  - BLOOD CREATININE INCREASED [None]
  - DYSPNOEA [None]
  - HYPONATRAEMIA [None]
